FAERS Safety Report 5509685-X (Version None)
Quarter: 2007Q4

REPORT INFORMATION
  Report Type: 
  Country: None (occurrence: None)
  Receive Date: 20071107
  Receipt Date: 20071107
  Transmission Date: 20080405
  Serious: Yes (Hospitalization)
  Sender: FDA-Public Use
  Company Number: None

PATIENT
  Age: 70 Year
  Sex: Male
  Weight: 83.9154 kg

DRUGS (4)
  1. HYDROCHLOROTHIAZIDE [Suspect]
     Indication: BLOOD PRESSURE
     Dosage: 12.5 MG DAILY PO
     Route: 048
     Dates: start: 20061205, end: 20070324
  2. DIAZEPAM [Concomitant]
  3. FLUNISOLIDE [Concomitant]
  4. GEMFIBROZIL [Concomitant]

REACTIONS (4)
  - CONFUSIONAL STATE [None]
  - DEPRESSED LEVEL OF CONSCIOUSNESS [None]
  - FALL [None]
  - SYNCOPE [None]
